FAERS Safety Report 9248319 (Version 1)
Quarter: 2013Q2

REPORT INFORMATION
  Report Type: Spontaneous
  Country: BR (occurrence: BR)
  Receive Date: 20130423
  Receipt Date: 20130423
  Transmission Date: 20140414
  Serious: Yes (Other)
  Sender: FDA-Public Use
  Company Number: BR-ASTRAZENECA-2013SE26160

PATIENT
  Age: 638 Month
  Sex: Female
  Weight: 54 kg

DRUGS (8)
  1. SELOZOK [Suspect]
     Route: 048
     Dates: start: 201210
  2. OMEPRAZOLE [Suspect]
     Indication: GASTRITIS PROPHYLAXIS
     Dosage: UNKNOWN DOSE, TWO TIMES A DAY
     Route: 048
     Dates: start: 2011
  3. QUETIAPINE FUMARATE [Suspect]
     Route: 048
     Dates: start: 201303
  4. ENALAPRIL [Suspect]
     Indication: HYPERTENSION
     Dosage: UNKNOWN DOSE,TWO TIMES A DAY
     Route: 065
     Dates: start: 2005, end: 20130414
  5. MAREVAN [Concomitant]
     Dosage: UNKNOWN DOSE, DAILY
     Dates: start: 2005
  6. DEPAKOTE [Concomitant]
     Indication: CONVULSION
     Dosage: UNKNOWN DOSE, DAILY
     Dates: start: 2010
  7. MIRTAZAPINE [Concomitant]
     Indication: DEPRESSION
     Dosage: UNKNOWN DOSE, DAILY
     Dates: start: 2010
  8. RISPERIDONE [Concomitant]
     Dates: start: 2006, end: 201303

REACTIONS (4)
  - Blood pressure increased [Not Recovered/Not Resolved]
  - Aggression [Recovering/Resolving]
  - Joint stiffness [Recovered/Resolved]
  - Off label use [Not Recovered/Not Resolved]
